FAERS Safety Report 15731332 (Version 4)
Quarter: 2019Q1

REPORT INFORMATION
  Report Type: Spontaneous
  Country: CO (occurrence: CO)
  Receive Date: 20181217
  Receipt Date: 20190107
  Transmission Date: 20190417
  Serious: Yes (Other)
  Sender: FDA-Public Use
  Company Number: CO-PFIZER INC-2018510128

PATIENT
  Age: 36 Year
  Sex: Female

DRUGS (5)
  1. LYRICA [Interacting]
     Active Substance: PREGABALIN
     Indication: SCIATICA
     Dosage: 75 MG, DAILY
  2. LEVOTHYROXINE. [Concomitant]
     Active Substance: LEVOTHYROXINE
     Indication: HYPOTHYROIDISM
     Dosage: UNK
  3. LYRICA [Suspect]
     Active Substance: PREGABALIN
     Indication: PERIPHERAL NERVE LESION
     Dosage: 150 MG, DAILY (ONE EVERY NIGHT)
     Route: 048
     Dates: start: 20181023
  4. METHOCARBAMOL. [Interacting]
     Active Substance: METHOCARBAMOL
     Indication: PAIN
     Dosage: 750 MG, UNK
     Dates: start: 20181207
  5. LYRICA [Interacting]
     Active Substance: PREGABALIN
     Indication: NEURALGIA

REACTIONS (13)
  - Feeling abnormal [Recovered/Resolved]
  - Somnolence [Recovering/Resolving]
  - Panic attack [Recovered/Resolved]
  - Suicidal ideation [Recovered/Resolved]
  - Drug interaction [Recovered/Resolved]
  - Fear [Recovered/Resolved]
  - Palpitations [Recovered/Resolved]
  - Anxiety [Recovered/Resolved]
  - Vomiting [Recovered/Resolved]
  - Crying [Recovered/Resolved]
  - Dizziness [Recovered/Resolved]
  - Psychotic disorder [Recovered/Resolved]
  - Overdose [Unknown]

NARRATIVE: CASE EVENT DATE: 20181207
